FAERS Safety Report 5950620-8 (Version None)
Quarter: 2008Q4

REPORT INFORMATION
  Report Type: 
  Country: None (occurrence: None)
  Receive Date: 20081112
  Receipt Date: 20081104
  Transmission Date: 20090506
  Serious: Yes (Hospitalization, Other)
  Sender: FDA-Public Use
  Company Number: DE-JNJFOC-20081100496

PATIENT
  Sex: Female

DRUGS (3)
  1. RISPERDAL [Suspect]
     Indication: SCHIZOPHRENIA, PARANOID TYPE
     Route: 048
  2. ACETAMINOPHEN [Concomitant]
     Route: 048
  3. LORAZEPAM [Concomitant]
     Dosage: 0.5 - 1MG
     Route: 048

REACTIONS (1)
  - PANCYTOPENIA [None]
